FAERS Safety Report 9363018 (Version 7)
Quarter: 2013Q3

REPORT INFORMATION
  Report Type: Report from Study
  Country: DE (occurrence: DE)
  Receive Date: 20130624
  Receipt Date: 20130913
  Transmission Date: 20140515
  Serious: Yes (Other)
  Sender: FDA-Public Use
  Company Number: DE-ROCHE-1048666

PATIENT
  Age: 63 Year
  Sex: Female
  Weight: 67 kg

DRUGS (2)
  1. VEMURAFENIB [Suspect]
     Indication: MALIGNANT MELANOMA
     Dosage: LAST DOSE PRIOR TO SUPERFICIAL SPREADING MELANOMA: 11/NOV/2011
     Route: 048
     Dates: start: 20110921
  2. VEMURAFENIB [Suspect]
     Dosage: LAST DOSE PRIOR TO SCC: 10/SEP/2011
     Route: 048
     Dates: start: 20110829, end: 20110910

REACTIONS (2)
  - Malignant melanoma [Recovered/Resolved]
  - Squamous cell carcinoma of skin [Recovered/Resolved]
